FAERS Safety Report 7368182-X (Version None)
Quarter: 2011Q1

REPORT INFORMATION
  Report Type: 
  Country: None (occurrence: None)
  Receive Date: 20110323
  Receipt Date: 20110318
  Transmission Date: 20110831
  Serious: No
  Sender: FDA-Public Use
  Company Number: US-PFIZER INC-2011060018

PATIENT
  Sex: Male
  Weight: 74.83 kg

DRUGS (2)
  1. ADVIL PM [Suspect]
     Indication: SLEEP DISORDER
     Dosage: 200 MG, 1X/DAY
     Route: 048
     Dates: start: 20100101
  2. TEGRETOL [Concomitant]
     Indication: CONVULSION
     Dosage: 200 MG, 3X/DAY

REACTIONS (1)
  - DRUG INEFFECTIVE [None]
